FAERS Safety Report 10863808 (Version 1)
Quarter: 2015Q1

REPORT INFORMATION
  Report Type: Spontaneous
  Country: CH (occurrence: CH)
  Receive Date: 20150224
  Receipt Date: 20150224
  Transmission Date: 20150721
  Serious: Yes (Other)
  Sender: FDA-Public Use
  Company Number: CH-PFIZER INC-2015066101

PATIENT
  Age: 30 Year
  Sex: Female

DRUGS (6)
  1. ADALAT [Concomitant]
     Active Substance: NIFEDIPINE
     Indication: TOCOLYSIS
     Dosage: 30 MG, 2X/DAY
     Dates: start: 20141014
  2. RIVOTRIL [Suspect]
     Active Substance: CLONAZEPAM
     Indication: BORDERLINE PERSONALITY DISORDER
     Dosage: 2 MG, 1X/DAY
     Dates: start: 2013
  3. TRACTOCILE [Concomitant]
     Active Substance: ATOSIBAN
     Indication: TOCOLYSIS
     Dosage: UNK
     Dates: start: 20141012, end: 20141013
  4. ZOLOFT [Suspect]
     Active Substance: SERTRALINE HYDROCHLORIDE
     Indication: BORDERLINE PERSONALITY DISORDER
     Dosage: 50 MG, 1X/DAY
  5. SOMNIUM (DIPHENHYDRAMINE HYDROCHLORIDE/LORAZEPAM) [Suspect]
     Active Substance: DIPHENHYDRAMINE\LORAZEPAM
     Dosage: 1 MG, AS NEEDED
  6. TRITTICO [Suspect]
     Active Substance: TRAZODONE HYDROCHLORIDE
     Indication: BORDERLINE PERSONALITY DISORDER
     Dosage: 100 MG, 1X/DAY

REACTIONS (2)
  - Premature rupture of membranes [Unknown]
  - Shortened cervix [Unknown]
